FAERS Safety Report 12989399 (Version 4)
Quarter: 2017Q1

REPORT INFORMATION
  Report Type: Spontaneous
  Country: US (occurrence: US)
  Receive Date: 20161201
  Receipt Date: 20170320
  Transmission Date: 20170428
  Serious: Yes (Death, Hospitalization, Other)
  Sender: FDA-Public Use
  Company Number: US-SHIRE-US201618071

PATIENT
  Age: 78 Year
  Sex: Male
  Weight: 86.26 kg

DRUGS (6)
  1. PREDNISONE. [Concomitant]
     Active Substance: PREDNISONE
     Indication: COLITIS ULCERATIVE
     Dosage: 10 MG, OTHER (AS DIRECTED)
     Dates: start: 201606, end: 201608
  2. LIALDA [Suspect]
     Active Substance: MESALAMINE
     Indication: COLITIS ULCERATIVE
     Dosage: 3.6 G (THREE 1.2 G TABLETS), 1X/DAY:QD
     Route: 048
     Dates: start: 201606, end: 201609
  3. PREDNISONE. [Concomitant]
     Active Substance: PREDNISONE
     Dosage: 10 MG ALTERNATING WITH 5 MG OTHER (FOR 10 DAYS)
     Route: 065
     Dates: start: 2016, end: 2016
  4. PREDNISONE. [Concomitant]
     Active Substance: PREDNISONE
     Dosage: 5 MG, OTHER (FOR 10 DAYS THEN STOP)
     Route: 065
     Dates: start: 2016, end: 201609
  5. AUGMENTIN [Concomitant]
     Active Substance: AMOXICILLIN\CLAVULANATE POTASSIUM
     Indication: PRODUCT USED FOR UNKNOWN INDICATION
     Dosage: UNK, UNKNOWN
     Route: 065
     Dates: end: 20161007
  6. MULTIVITAMIN AND MINERAL SUPPLEMENT [Concomitant]
     Active Substance: MINERALS\VITAMINS
     Indication: PRODUCT USED FOR UNKNOWN INDICATION
     Dosage: 1 DF, 1X/DAY:QD
     Route: 048

REACTIONS (9)
  - Agranulocytosis [Fatal]
  - Atrial fibrillation [Unknown]
  - Sepsis [Fatal]
  - Asthenia [Unknown]
  - Deep vein thrombosis [Unknown]
  - Lung infiltration [Unknown]
  - Hepatomegaly [Unknown]
  - Mental status changes [Unknown]
  - Inguinal hernia [Unknown]

NARRATIVE: CASE EVENT DATE: 2016
